FAERS Safety Report 7005786-8 (Version None)
Quarter: 2010Q3

REPORT INFORMATION
  Report Type: 
  Country: None (occurrence: None)
  Receive Date: 20100917
  Receipt Date: 20100525
  Transmission Date: 20110219
  Serious: Yes (Other)
  Sender: FDA-Public Use
  Company Number: DSA_42506_2010

PATIENT
  Sex: Female

DRUGS (3)
  1. XENAZINE [Suspect]
     Indication: HUNTINGTON'S DISEASE
     Dosage: (12.5 MG TID ORAL) ; (12.5 MG BID ORAL)
     Route: 048
     Dates: start: 20091208, end: 20100202
  2. XENAZINE [Suspect]
     Indication: HUNTINGTON'S DISEASE
     Dosage: (12.5 MG TID ORAL) ; (12.5 MG BID ORAL)
     Route: 048
     Dates: start: 20100203
  3. MULTI-VITAMIN [Concomitant]

REACTIONS (1)
  - DEPRESSION [None]
